FAERS Safety Report 8917090 (Version 1)
Quarter: 2012Q4

REPORT INFORMATION
  Report Type: 
  Country: US (occurrence: US)
  Receive Date: 20121120
  Receipt Date: 20121120
  Transmission Date: 20130627
  Serious: No
  Sender: FDA-Public Use
  Company Number: US-ALLERGAN-1214012US

PATIENT
  Sex: Female

DRUGS (1)
  1. LASTACAFT [Suspect]
     Indication: ALLERGIC CONJUNCTIVITIS
     Dosage: 1 Gtt OU, qd
     Route: 047

REACTIONS (1)
  - Ocular hyperaemia [Recovering/Resolving]
